FAERS Safety Report 13866061 (Version 1)
Quarter: 2017Q3

REPORT INFORMATION
  Report Type: Spontaneous
  Country: US (occurrence: US)
  Receive Date: 20170814
  Receipt Date: 20170814
  Transmission Date: 20171127
  Serious: Yes (Hospitalization, Other)
  Sender: FDA-Public Use
  Company Number: US-ROCHE-1853935

PATIENT
  Age: 76 Year
  Sex: Male
  Weight: 98.97 kg

DRUGS (1)
  1. ACTEMRA [Suspect]
     Active Substance: TOCILIZUMAB
     Indication: RHEUMATOID ARTHRITIS
     Dosage: LAST INFUSION ON 11/OCT/2016
     Route: 042
     Dates: start: 201503

REACTIONS (5)
  - Abdominal pain [Recovered/Resolved]
  - Diverticulitis [Unknown]
  - Abscess [Unknown]
  - Large intestine perforation [Unknown]
  - Urinary tract infection [Recovered/Resolved]

NARRATIVE: CASE EVENT DATE: 201610
